FAERS Safety Report 17092356 (Version 1)
Quarter: 2019Q4

REPORT INFORMATION
  Report Type: Spontaneous
  Country: US (occurrence: US)
  Receive Date: 20191101
  Receipt Date: 20191101
  Transmission Date: 20200122
  Serious: Yes (Hospitalization)
  Sender: FDA-Public Use
  Company Number: None

PATIENT
  Age: 79 Year
  Sex: Female

DRUGS (2)
  1. IBRANCE [Suspect]
     Active Substance: PALBOCICLIB
     Indication: COLON CANCER
     Route: 048
     Dates: start: 20190416
  2. ANASTROZOLE 1 MG ZYDUS PHARMACEUTICALS (USA) [Suspect]
     Active Substance: ANASTROZOLE
     Indication: COLON CANCER
     Route: 048
     Dates: start: 20190416

REACTIONS (1)
  - Transfusion [None]

NARRATIVE: CASE EVENT DATE: 20191001
